FAERS Safety Report 7955782-9 (Version None)
Quarter: 2011Q4

REPORT INFORMATION
  Report Type: 
  Country: None (occurrence: None)
  Receive Date: 20111205
  Receipt Date: 20111201
  Transmission Date: 20120403
  Serious: Yes (Death, Hospitalization)
  Sender: FDA-Public Use
  Company Number: US-BRISTOL-MYERS SQUIBB COMPANY-15852379

PATIENT
  Age: 61 Year
  Sex: Male
  Weight: 80 kg

DRUGS (32)
  1. IMODIUM [Concomitant]
  2. DICYCLOMINE [Concomitant]
     Dosage: 1 TAB ,BEFORE MEAL.
     Route: 048
     Dates: start: 20110612
  3. PREDNISONE TAB [Concomitant]
     Dosage: REDUCED FORM 30 MG TO 20MGPER 3DAYS, 10MG FOR 3DAYS, 5MGFOR 3DAYS
  4. IPILIMUMAB [Suspect]
     Indication: MALIGNANT MELANOMA
     Route: 042
     Dates: start: 20110202, end: 20110405
  5. ONDANSETRON [Concomitant]
     Indication: NAUSEA
     Dosage: 1 DF: 4-8 MG TAB Q8HRS PRN INJ IV 4MG/2ML
     Route: 048
     Dates: start: 20110612
  6. HEPARIN SODIUM [Concomitant]
     Route: 058
  7. OXYCODONE HCL [Concomitant]
     Dosage: 1DF:4-5MG 1-2 TABS S NEEEDED
     Route: 048
     Dates: start: 20110612
  8. KEPPRA [Concomitant]
     Indication: CONVULSION
     Dosage: 1 DF: 2 TAB 1000MG BID 500MG BID,
     Route: 048
  9. PREDNISONE TAB [Concomitant]
     Dosage: TAB
     Route: 048
  10. MIDAZOLAM [Concomitant]
     Route: 042
  11. ZOFRAN [Concomitant]
     Indication: NAUSEA
  12. FERROUS SULFATE TAB [Concomitant]
     Dosage: EC 324MG TAB
     Route: 048
  13. METRONIDAZOLE [Concomitant]
     Dosage: ROA:IVPB
  14. TRIAMCINOLONE [Concomitant]
     Dosage: 1 DF: 1 APPLICATION CREAM 80G
     Route: 061
  15. RANITIDINE [Concomitant]
     Route: 048
  16. FENTANYL [Concomitant]
     Route: 042
  17. SENNA [Concomitant]
  18. LORAZEPAM [Concomitant]
     Indication: ANXIETY
     Dosage: 0.5-1 MG Q12HRS
     Route: 042
  19. HEPARIN LOCK-FLUSH [Concomitant]
     Route: 042
  20. BISACODYL SUPPOSITORY [Concomitant]
  21. OCTREOTIDE ACETATE [Concomitant]
     Dosage: 1 INJ
     Dates: start: 20110612
  22. ZOFRAN [Concomitant]
     Indication: VOMITING
  23. SODIUM CHLORIDE [Concomitant]
     Route: 042
  24. OMEPRAZOLE [Concomitant]
     Indication: PROPHYLAXIS
     Dosage: 1 DF: 1 CAP 20MG/D
     Route: 048
  25. TENOFOVIR DISOPROXIL FUMARATE [Concomitant]
     Route: 048
  26. VANCOMYCIN [Concomitant]
     Route: 048
  27. FLAGYL [Concomitant]
     Dosage: ALSO ORAL
     Route: 042
  28. OXYGEN [Concomitant]
  29. VIREAD [Concomitant]
     Route: 048
     Dates: start: 20110612
  30. ACETAMINOPHEN [Concomitant]
     Indication: PAIN
  31. PROCHLORPERAZINE [Concomitant]
     Dosage: INJ Q6HRS
     Route: 042
  32. MILK OF MAGNESIA TAB [Concomitant]

REACTIONS (6)
  - CLOSTRIDIAL INFECTION [None]
  - PAIN [None]
  - NAUSEA [None]
  - VOMITING [None]
  - ENTEROCOLITIS [None]
  - NEOPLASM MALIGNANT [None]
